FAERS Safety Report 6178408-6 (Version None)
Quarter: 2009Q2

REPORT INFORMATION
  Report Type: 
  Country: None (occurrence: None)
  Receive Date: 20090504
  Receipt Date: 20090424
  Transmission Date: 20091009
  Serious: Yes (Congenital Anomaly, Other)
  Sender: FDA-Public Use
  Company Number: US-ABBOTT-01P-163-0106201-00

PATIENT
  Sex: Female
  Weight: 33 kg

DRUGS (8)
  1. NORVIR [Suspect]
     Indication: DRUG EXPOSURE DURING PREGNANCY
     Route: 064
  2. SUSTIVA [Suspect]
     Indication: DRUG EXPOSURE DURING PREGNANCY
     Route: 064
  3. COMBIVIR [Suspect]
     Indication: DRUG EXPOSURE DURING PREGNANCY
     Route: 064
  4. VIRAMUNE [Suspect]
     Indication: DRUG EXPOSURE DURING PREGNANCY
     Route: 064
  5. VIDEX [Suspect]
     Indication: DRUG EXPOSURE DURING PREGNANCY
     Route: 064
  6. CRIXIVAN [Suspect]
     Indication: DRUG EXPOSURE DURING PREGNANCY
     Route: 064
  7. ZERIT [Suspect]
     Indication: DRUG EXPOSURE DURING PREGNANCY
     Route: 064
  8. EPIVIR [Suspect]
     Indication: DRUG EXPOSURE DURING PREGNANCY
     Route: 064

REACTIONS (4)
  - CARDIAC DISORDER [None]
  - DRUG EXPOSURE DURING PREGNANCY [None]
  - PULMONARY HYPERTENSION [None]
  - TRICUSPID VALVE INCOMPETENCE [None]
